FAERS Safety Report 9937398 (Version 1)
Quarter: 2014Q1

REPORT INFORMATION
  Report Type: Report from Study
  Country: CA (occurrence: CA)
  Receive Date: 20140303
  Receipt Date: 20140303
  Transmission Date: 20141002
  Serious: Yes (Death, Hospitalization)
  Sender: FDA-Public Use
  Company Number: CA-JNJFOC-20140216767

PATIENT
  Sex: Male

DRUGS (5)
  1. ACETAMINOPHEN [Suspect]
     Route: 065
  2. ACETAMINOPHEN [Suspect]
     Indication: PRODUCT USED FOR UNKNOWN INDICATION
     Route: 065
     Dates: start: 20070306, end: 20070307
  3. TYLENOL [Suspect]
     Indication: PRODUCT USED FOR UNKNOWN INDICATION
     Route: 065
     Dates: start: 20070306, end: 20070307
  4. CODEINE [Concomitant]
     Indication: PRODUCT USED FOR UNKNOWN INDICATION
     Route: 065
  5. CAFFEINE [Concomitant]
     Indication: PRODUCT USED FOR UNKNOWN INDICATION
     Route: 065

REACTIONS (12)
  - Multi-organ disorder [Fatal]
  - Septic shock [Fatal]
  - Empyema [Fatal]
  - Hepatic failure [Fatal]
  - Brain oedema [Fatal]
  - Pneumococcal infection [Fatal]
  - Arteriosclerosis [Fatal]
  - Hepatic function abnormal [Fatal]
  - Pulmonary embolism [Fatal]
  - Brain injury [Fatal]
  - Cellulitis [Fatal]
  - Blister [Fatal]
